FAERS Safety Report 9745019 (Version 1)
Quarter: 2013Q4

REPORT INFORMATION
  Report Type: Spontaneous
  Country: CO (occurrence: CO)
  Receive Date: 20131211
  Receipt Date: 20131211
  Transmission Date: 20140711
  Serious: Yes (Other)
  Sender: FDA-Public Use
  Company Number: CO-AMGEN-COLSP2013086293

PATIENT
  Age: 71 Year
  Sex: Female

DRUGS (5)
  1. ENBREL [Suspect]
     Indication: PSORIASIS
     Dosage: 50 MG, WEEKLY
     Route: 058
     Dates: start: 2007
  2. BETAMETHASONE [Concomitant]
     Indication: PSORIASIS
     Dosage: UNK, TWICE DAILY
     Route: 061
     Dates: start: 1987
  3. PREDNISOLONE [Concomitant]
     Indication: PSORIASIS
     Dosage: 5 MG, ONCE DAILY
     Route: 048
     Dates: start: 1987
  4. METHOTREXATE [Concomitant]
     Indication: PSORIASIS
     Dosage: 7.5 MG (3 TABLETS OF 2.5 MG), WEEKLY
     Route: 048
     Dates: start: 2012
  5. OMEPRAZOL                          /00661201/ [Concomitant]
     Indication: PSORIASIS
     Dosage: 40 MG, TWICE DAILY
     Route: 048

REACTIONS (4)
  - Bone marrow oedema [Not Recovered/Not Resolved]
  - Tibia fracture [Not Recovered/Not Resolved]
  - Arthropathy [Not Recovered/Not Resolved]
  - Arthralgia [Not Recovered/Not Resolved]
